FAERS Safety Report 15945202 (Version 5)
Quarter: 2019Q2

REPORT INFORMATION
  Report Type: Report from Study
  Country: ZA (occurrence: ZA)
  Receive Date: 20190211
  Receipt Date: 20190510
  Transmission Date: 20190711
  Serious: Yes (Life-Threatening, Hospitalization)
  Sender: FDA-Public Use
  Company Number: ZA-SA-2019SA035093

PATIENT
  Age: 52 Year
  Sex: Female

DRUGS (7)
  1. OPTISULIN (INSULIN GLARGINE) [Suspect]
     Active Substance: INSULIN GLARGINE
     Dosage: 7 U, HS, AT BT (BED TIME)
     Dates: start: 20190124
  2. OPTISULIN (INSULIN GLARGINE) [Suspect]
     Active Substance: INSULIN GLARGINE
     Dosage: DOSE REDUCED (DOSING DETAILS UNKNOWN)
  3. METFORMIN [Concomitant]
     Active Substance: METFORMIN HYDROCHLORIDE
     Dosage: AS AFTER SUPPER-850 MG, AB AFTER BREAKFAST-1700, BID (AS-AB)
     Dates: start: 20190124
  4. ENAP [ENALAPRIL MALEATE] [Concomitant]
     Dosage: 5 MG, QD AT BB (BEFORE BREAKFAST)
     Dates: start: 20190124
  5. NO STUDY DRUG GIVEN [Suspect]
     Active Substance: UNSPECIFIED INGREDIENT
  6. GLICLAZIDE [Concomitant]
     Active Substance: GLICLAZIDE
     Dosage: 80 MG, BID, BEFORE SUPPER AND BEFORE BREAKFAST
     Dates: start: 20190124
  7. OPTISULIN (INSULIN GLARGINE) [Suspect]
     Active Substance: INSULIN GLARGINE
     Indication: TYPE 2 DIABETES MELLITUS
     Dosage: 12 U, HS
     Dates: start: 20190112

REACTIONS (6)
  - Gastrooesophageal reflux disease [Not Recovered/Not Resolved]
  - Hypoglycaemia [Not Recovered/Not Resolved]
  - Cataract [Recovered/Resolved]
  - Blood glucose decreased [Recovered/Resolved]
  - Hypoglycaemia [Recovered/Resolved]
  - Blood glucose decreased [Recovered/Resolved]

NARRATIVE: CASE EVENT DATE: 20190204
